FAERS Safety Report 7124507-1 (Version None)
Quarter: 2010Q4

REPORT INFORMATION
  Report Type: 
  Country: None (occurrence: None)
  Receive Date: 20101128
  Receipt Date: 20101116
  Transmission Date: 20110411
  Serious: Yes (Death)
  Sender: FDA-Public Use
  Company Number: JP-AMGEN-JPNCT2010003305

PATIENT
  Age: 76 Year
  Sex: Male
  Weight: 46 kg

DRUGS (3)
  1. PANITUMUMAB [Suspect]
     Indication: COLORECTAL CANCER METASTATIC
     Dosage: UNK UNK, Q2WK
     Route: 041
     Dates: start: 20101004
  2. HIRUDOID SOFT [Concomitant]
     Route: 062
  3. ANTEBATE [Concomitant]
     Route: 062

REACTIONS (1)
  - COLORECTAL CANCER [None]
